FAERS Safety Report 21762440 (Version 3)
Quarter: 2023Q1

REPORT INFORMATION
  Report Type: Spontaneous
  Country: US (occurrence: US)
  Receive Date: 20221221
  Receipt Date: 20230306
  Transmission Date: 20230417
  Serious: Yes (Death, Other)
  Sender: FDA-Public Use
  Company Number: US-PFIZER INC-202201384358

PATIENT
  Age: 64 Year
  Sex: Female

DRUGS (3)
  1. NIVESTYM [Suspect]
     Active Substance: FILGRASTIM-AAFI
     Indication: Colon cancer
     Dosage: UNK
     Dates: start: 2021
  2. NIVESTYM [Suspect]
     Active Substance: FILGRASTIM-AAFI
     Indication: Colon cancer stage IV
  3. NIVESTYM [Suspect]
     Active Substance: FILGRASTIM-AAFI
     Indication: Chemotherapy

REACTIONS (1)
  - Colon cancer [Fatal]

NARRATIVE: CASE EVENT DATE: 20220628
